FAERS Safety Report 9097066 (Version 1)
Quarter: 2013Q1

REPORT INFORMATION
  Report Type: Spontaneous
  Country: DK (occurrence: None)
  Receive Date: 20130123
  Receipt Date: 20130123
  Transmission Date: 20140127
  Serious: Yes (Other)
  Sender: FDA-Public Use
  Company Number: 2013MA000567

PATIENT
  Age: 62 Year
  Sex: Male

DRUGS (1)
  1. OXALIPLATIN FOR INJECTION USP 100MG SINGLE-DOSE VIALS (ATLLC) (OXALIPLATIN) [Suspect]
     Indication: COLON NEOPLASM
     Route: 042
     Dates: start: 20130109, end: 20130109

REACTIONS (5)
  - Loss of consciousness [None]
  - Hypotension [None]
  - Hyperhidrosis [None]
  - Pallor [None]
  - Blood glucose increased [None]
